FAERS Safety Report 4950834-X (Version None)
Quarter: 2006Q1

REPORT INFORMATION
  Report Type: 
  Country: None (occurrence: None)
  Receive Date: 20060322
  Receipt Date: 20051124
  Transmission Date: 20060701
  Serious: Yes (Death, Other)
  Sender: FDA-Public Use
  Company Number: PHBS2005JP17349

PATIENT
  Age: 27 Year
  Sex: Male

DRUGS (3)
  1. TACROLIMUS [Suspect]
     Indication: STEM CELL TRANSPLANT
     Route: 065
  2. SANDIMMUNE [Suspect]
     Indication: STEM CELL TRANSPLANT
     Dosage: 3 MG/KG/D
     Route: 065
     Dates: start: 20051122, end: 20051122
  3. SANDIMMUNE [Suspect]
     Dosage: 3 MG/KG/D
     Route: 065
     Dates: start: 20060111

REACTIONS (6)
  - CONVULSION [None]
  - ENCEPHALITIS VIRAL [None]
  - ENCEPHALOPATHY [None]
  - GRAFT VERSUS HOST DISEASE [None]
  - HERPES SIMPLEX [None]
  - RENAL IMPAIRMENT [None]
